FAERS Safety Report 14532002 (Version 1)
Quarter: 2018Q1

REPORT INFORMATION
  Report Type: Spontaneous
  Country: US (occurrence: US)
  Receive Date: 20180214
  Receipt Date: 20180214
  Transmission Date: 20180509
  Serious: No
  Sender: FDA-Public Use
  Company Number: US-ALLERGAN-1717030US

PATIENT
  Sex: Female

DRUGS (2)
  1. GELNIQUE [Suspect]
     Active Substance: OXYBUTYNIN
     Dosage: UNK
     Route: 061
     Dates: start: 201703
  2. GELNIQUE [Suspect]
     Active Substance: OXYBUTYNIN
     Indication: HYPERTONIC BLADDER
     Dosage: UNK, UNKNOWN
     Route: 061
     Dates: start: 201703

REACTIONS (3)
  - Underdose [Unknown]
  - Drug ineffective [Unknown]
  - Product use complaint [Unknown]
